FAERS Safety Report 4306782-1 (Version None)
Quarter: 2004Q1

REPORT INFORMATION
  Report Type: 
  Country: None (occurrence: None)
  Receive Date: 20040225
  Receipt Date: 20040209
  Transmission Date: 20041129
  Serious: Yes (Other)
  Sender: FDA-Public Use
  Company Number: USA040258861

PATIENT
  Age: 59 Year
  Weight: 45 kg

DRUGS (5)
  1. FORTEO [Suspect]
     Indication: OSTEOPOROSIS
     Dates: start: 20030801
  2. CRESTOR (ROSUVASTATIN) [Concomitant]
  3. PROTONIX [Concomitant]
  4. SYMAX (HYOSCYAMINE SULFATE) [Concomitant]
  5. ZOLOFT [Concomitant]

REACTIONS (5)
  - CONTUSION [None]
  - CORNEAL ABRASION [None]
  - FALL [None]
  - MACULAR OEDEMA [None]
  - SWELLING FACE [None]
